FAERS Safety Report 4332806-1 (Version None)
Quarter: 2004Q1

REPORT INFORMATION
  Report Type: 
  Country: None (occurrence: None)
  Receive Date: 20040330
  Receipt Date: 20040319
  Transmission Date: 20041129
  Serious: Yes (Hospitalization)
  Sender: FDA-Public Use
  Company Number: 04P-161-0254157-00

PATIENT
  Age: 56 Year
  Sex: Male

DRUGS (3)
  1. TARKA [Suspect]
     Indication: HYPERTENSION
     Dosage: 1 TABLET, 1 IN 1 D, PER ORAL
     Route: 048
  2. HONEY [Suspect]
     Indication: DRUG USE FOR UNKNOWN INDICATION
     Dosage: 30 GM, ONCE, ORAL
     Route: 048
  3. DOXAZOSIN MESYLATE [Concomitant]

REACTIONS (4)
  - ATRIOVENTRICULAR BLOCK [None]
  - DRUG INTERACTION [None]
  - PALPITATIONS [None]
  - SINOATRIAL BLOCK [None]
